FAERS Safety Report 18639870 (Version 1)
Quarter: 2020Q4

REPORT INFORMATION
  Report Type: Spontaneous
  Country: US (occurrence: US)
  Receive Date: 20201220
  Receipt Date: 20201220
  Transmission Date: 20210114
  Serious: No
  Sender: FDA-Public Use
  Company Number: US-PACIRA-201900379

PATIENT
  Sex: Male

DRUGS (1)
  1. EXPAREL [Suspect]
     Active Substance: BUPIVACAINE
     Indication: UMBILICAL HERNIA REPAIR
     Dosage: DOSE UNKNOWN, BUT HCP STATED HE GAVE A ^LITTLE EXTRA^
     Route: 065
     Dates: start: 201908

REACTIONS (6)
  - Tinnitus [Not Recovered/Not Resolved]
  - Dizziness [Unknown]
  - Somnolence [Unknown]
  - Confusional state [Unknown]
  - Nausea [Unknown]
  - Headache [Unknown]
